FAERS Safety Report 10991483 (Version 1)
Quarter: 2015Q2

REPORT INFORMATION
  Report Type: Spontaneous
  Country: US (occurrence: US)
  Receive Date: 20150406
  Receipt Date: 20150406
  Transmission Date: 20150821
  Serious: No
  Sender: FDA-Public Use
  Company Number: US-GLAXOSMITHKLINE-US2015003630

PATIENT
  Age: 65 Year
  Sex: Female

DRUGS (1)
  1. NICODERM CQ [Suspect]
     Active Substance: NICOTINE
     Indication: SMOKING CESSATION THERAPY
     Dosage: 21 MG, UNK
     Dates: start: 20141229, end: 20150112

REACTIONS (7)
  - Application site swelling [Not Recovered/Not Resolved]
  - Paraesthesia [Recovered/Resolved]
  - Application site pruritus [Not Recovered/Not Resolved]
  - Sensory disturbance [Recovered/Resolved]
  - Application site erythema [Not Recovered/Not Resolved]
  - Application site paraesthesia [Not Recovered/Not Resolved]
  - Hypoaesthesia [Recovered/Resolved]
